FAERS Safety Report 13933383 (Version 2)
Quarter: 2017Q3

REPORT INFORMATION
  Report Type: Report from Study
  Country: RU (occurrence: RU)
  Receive Date: 20170904
  Receipt Date: 20170925
  Transmission Date: 20171127
  Serious: Yes (Hospitalization)
  Sender: FDA-Public Use
  Company Number: PHHO2017RU012193

PATIENT
  Age: 50 Year
  Sex: Male
  Weight: 70.1 kg

DRUGS (9)
  1. AIN457 [Suspect]
     Active Substance: SECUKINUMAB
     Indication: ANKYLOSING SPONDYLITIS
     Dosage: 150 MG, UNK
     Route: 058
     Dates: start: 20150910, end: 20160811
  2. OMEPRAZOLUM [Concomitant]
     Indication: PROPHYLAXIS
     Dosage: 20 MG, QD
     Route: 048
     Dates: start: 20140724, end: 20170822
  3. METHOTREXATE. [Concomitant]
     Active Substance: METHOTREXATE
     Indication: SPONDYLITIS
     Dosage: 10 MG, QW
     Route: 048
     Dates: start: 20060313, end: 20170817
  4. FOLIC ACID. [Concomitant]
     Active Substance: FOLIC ACID
     Indication: PROPHYLAXIS
     Dosage: 25 MG, QW
     Route: 048
     Dates: start: 20080313, end: 20170819
  5. OMEPRAZOLUM [Concomitant]
     Dosage: UNK
     Route: 048
     Dates: start: 20170823
  6. AIN457 [Suspect]
     Active Substance: SECUKINUMAB
     Indication: ANKYLOSING SPONDYLITIS
     Dosage: 150 MG, QW4
     Route: 058
     Dates: start: 20160915
  7. MELOXICAM. [Concomitant]
     Active Substance: MELOXICAM
     Indication: SPONDYLITIS
     Dosage: 15 MG, QD
     Route: 048
     Dates: start: 20140724, end: 20170822
  8. METOPROLOL. [Concomitant]
     Active Substance: METOPROLOL
     Indication: HYPERTENSION
     Dosage: 25 MG, QD
     Route: 048
     Dates: start: 201502
  9. FOLIC ACID. [Concomitant]
     Active Substance: FOLIC ACID
     Dosage: UNK
     Route: 048
     Dates: start: 20170824

REACTIONS (1)
  - Duodenal ulcer [Recovered/Resolved with Sequelae]

NARRATIVE: CASE EVENT DATE: 20170817
